FAERS Safety Report 5827120-9 (Version None)
Quarter: 2008Q3

REPORT INFORMATION
  Report Type: 
  Country: None (occurrence: None)
  Receive Date: 20080729
  Receipt Date: 20080729
  Transmission Date: 20090109
  Serious: Yes (Hospitalization)
  Sender: FDA-Public Use
  Company Number: None

PATIENT
  Sex: Male
  Weight: 102.3 kg

DRUGS (5)
  1. ZOMETA [Suspect]
     Dosage: 4 MG
  2. LORTAB [Concomitant]
  3. LUPRON [Concomitant]
  4. OXYCODONE HCL [Concomitant]
  5. ZOMETA [Concomitant]

REACTIONS (7)
  - ACCIDENTAL EXPOSURE [None]
  - ACUTE PRERENAL FAILURE [None]
  - ANOREXIA [None]
  - DEHYDRATION [None]
  - INCORRECT DOSE ADMINISTERED [None]
  - NAUSEA [None]
  - VOMITING [None]
